FAERS Safety Report 7439909-3 (Version None)
Quarter: 2011Q2

REPORT INFORMATION
  Report Type: 
  Country: None (occurrence: None)
  Receive Date: 20110427
  Receipt Date: 20110418
  Transmission Date: 20111010
  Serious: Yes (Hospitalization, Other)
  Sender: FDA-Public Use
  Company Number: DE-ASTRAZENECA-2011SE19562

PATIENT
  Age: 21063 Day
  Sex: Female

DRUGS (1)
  1. BRILIQUE [Suspect]
     Indication: CORONARY ANGIOPLASTY
     Route: 048
     Dates: start: 20110208

REACTIONS (1)
  - ATRIOVENTRICULAR BLOCK COMPLETE [None]
